FAERS Safety Report 9214462 (Version 2)
Quarter: 2013Q2

REPORT INFORMATION
  Report Type: Spontaneous
  Country: JP (occurrence: JP)
  Receive Date: 20130405
  Receipt Date: 20130415
  Transmission Date: 20140414
  Serious: Yes (Other)
  Sender: FDA-Public Use
  Company Number: JP-ASTRAZENECA-2013SE09193

PATIENT
  Age: 58 Year
  Sex: Male
  Weight: 68 kg

DRUGS (10)
  1. CRESTOR [Suspect]
     Indication: HYPERLIPIDAEMIA
     Route: 048
     Dates: start: 20120116, end: 20120123
  2. CRESTOR [Suspect]
     Indication: HYPERLIPIDAEMIA
     Route: 048
     Dates: start: 20120126, end: 20120128
  3. LIPITOR [Concomitant]
     Dates: start: 20120628, end: 20120704
  4. NORVASC [Concomitant]
     Indication: HYPERTENSION
     Route: 048
     Dates: end: 20120627
  5. BAYASPIRIN [Concomitant]
     Indication: AORTIC ANEURYSM
     Route: 048
     Dates: start: 20090407
  6. MUCOSTA [Concomitant]
     Indication: GASTRITIS
     Route: 048
     Dates: start: 20110407, end: 20120627
  7. AVAPRO [Concomitant]
     Indication: HYPERTENSION
     Route: 048
     Dates: start: 20110728, end: 20120627
  8. PRAVASTATIN SODIUM [Concomitant]
     Dates: start: 20121106
  9. PRAVASTATIN SODIUM [Concomitant]
     Dates: start: 20130129
  10. MAINTATE [Concomitant]
     Indication: HYPERTENSION
     Route: 048
     Dates: start: 20110728

REACTIONS (1)
  - Palpitations [Recovering/Resolving]
